FAERS Safety Report 21494766 (Version 1)
Quarter: 2022Q4

REPORT INFORMATION
  Report Type: Spontaneous
  Country: None (occurrence: US)
  Receive Date: 20221021
  Receipt Date: 20221021
  Transmission Date: 20230113
  Serious: Yes (Hospitalization, Other)
  Sender: FDA-Public Use
  Company Number: US-Acella Pharmaceuticals, LLC-2134105

PATIENT
  Sex: Female

DRUGS (1)
  1. PHENYTOIN SODIUM [Suspect]
     Active Substance: PHENYTOIN SODIUM
     Indication: Trigeminal neuralgia
     Route: 065

REACTIONS (6)
  - Toxicity to various agents [Unknown]
  - Amnesia [Unknown]
  - Disorganised speech [Unknown]
  - Fall [Unknown]
  - Poisoning [Unknown]
  - Blood test abnormal [Unknown]
